FAERS Safety Report 5073372-5 (Version None)
Quarter: 2006Q3

REPORT INFORMATION
  Report Type: 
  Country: None (occurrence: None)
  Receive Date: 20060711
  Receipt Date: 20051220
  Transmission Date: 20061208
  Serious: Yes (Other)
  Sender: FDA-Public Use
  Company Number: 144052USA

PATIENT
  Age: 31 Year
  Sex: Female
  Weight: 72.5755 kg

DRUGS (3)
  1. TRAMADOL HCL [Suspect]
     Dates: start: 20051216, end: 20051218
  2. MIRTAZAPINE [Concomitant]
  3. IBUPROFEN [Concomitant]

REACTIONS (1)
  - CONVULSION [None]
